FAERS Safety Report 25958959 (Version 1)
Quarter: 2025Q4

REPORT INFORMATION
  Report Type: Spontaneous
  Country: CA (occurrence: CA)
  Receive Date: 20251025
  Receipt Date: 20251025
  Transmission Date: 20260117
  Serious: Yes (Other)
  Sender: ABBVIE
  Company Number: CA-ABBVIE-6518379

PATIENT

DRUGS (1)
  1. BOTOX [Suspect]
     Active Substance: ONABOTULINUMTOXINA
     Indication: Product used for unknown indication
     Dosage: TIME INTERVAL: AS NECESSARY: DOSE FORM- POWDER FOR SOLUTION
     Route: 065

REACTIONS (4)
  - Monoplegia [Unknown]
  - Pain in extremity [Unknown]
  - Insomnia [Unknown]
  - Nerve injury [Unknown]
